FAERS Safety Report 16868751 (Version 3)
Quarter: 2019Q4

REPORT INFORMATION
  Report Type: Spontaneous
  Country: US (occurrence: US)
  Receive Date: 20190930
  Receipt Date: 20191010
  Transmission Date: 20200122
  Serious: Yes (Death, Other)
  Sender: FDA-Public Use
  Company Number: US-PFIZER INC-2019275827

PATIENT
  Age: 79 Year
  Sex: Female
  Weight: 72.56 kg

DRUGS (2)
  1. LORBRENA [Suspect]
     Active Substance: LORLATINIB
     Dosage: 30 MG, 1X/DAY
     Dates: start: 20190501, end: 20190815
  2. LORBRENA [Suspect]
     Active Substance: LORLATINIB
     Indication: LUNG NEOPLASM MALIGNANT
     Dosage: UNK
     Dates: start: 201901

REACTIONS (2)
  - Death [Fatal]
  - Vocal cord paralysis [Unknown]

NARRATIVE: CASE EVENT DATE: 20190118
